FAERS Safety Report 8614095-2 (Version None)
Quarter: 2012Q3

REPORT INFORMATION
  Report Type: 
  Country: None (occurrence: None)
  Receive Date: 20120823
  Receipt Date: 20120727
  Transmission Date: 20120928
  Serious: No
  Sender: FDA-Public Use
  Company Number: US-009507513-1207USA012044

PATIENT

DRUGS (4)
  1. ROFLUMILAST [Suspect]
  2. COMBIVENT [Suspect]
  3. DULERA [Suspect]
  4. ALBUTEROL [Suspect]
     Route: 055

REACTIONS (3)
  - BRONCHITIS [None]
  - PYREXIA [None]
  - DRUG INEFFECTIVE [None]
